FAERS Safety Report 22161575 (Version 1)
Quarter: 2023Q1

REPORT INFORMATION
  Report Type: Spontaneous
  Country: US (occurrence: US)
  Receive Date: 20230331
  Receipt Date: 20230331
  Transmission Date: 20230417
  Serious: Yes (Life-Threatening, Hospitalization)
  Sender: FDA-Public Use
  Company Number: US-MYLANLABS-2023M1034242

PATIENT
  Age: 54 Year
  Sex: Female

DRUGS (1)
  1. TRANEXAMIC ACID [Suspect]
     Active Substance: TRANEXAMIC ACID
     Indication: Heavy menstrual bleeding
     Dosage: 1300 MILLIGRAM, TID (THREE TIMES DAILY ON AN AS NEEDED BASIS)
     Route: 048

REACTIONS (1)
  - Acute myocardial infarction [Recovered/Resolved]
